FAERS Safety Report 9642547 (Version 1)
Quarter: 2013Q4

REPORT INFORMATION
  Report Type: Spontaneous
  Country: US (occurrence: US)
  Receive Date: 20131024
  Receipt Date: 20131024
  Transmission Date: 20140711
  Serious: Yes (Hospitalization)
  Sender: FDA-Public Use
  Company Number: US-BAYER-2013-127887

PATIENT
  Age: 19 Year
  Sex: Female

DRUGS (3)
  1. YAZ [Suspect]
  2. PERCOCET [Concomitant]
  3. COLACE [Concomitant]
     Dosage: UNK

REACTIONS (1)
  - Pulmonary embolism [Recovering/Resolving]
